FAERS Safety Report 5394982-1 (Version None)
Quarter: 2007Q3

REPORT INFORMATION
  Report Type: 
  Country: None (occurrence: None)
  Receive Date: 20070724
  Receipt Date: 20070713
  Transmission Date: 20080115
  Serious: Yes (Hospitalization)
  Sender: FDA-Public Use
  Company Number: PHHO2007FR08831

PATIENT
  Age: 59 Year
  Sex: Female
  Weight: 66 kg

DRUGS (12)
  1. IMATINIB MESYLATE [Suspect]
     Indication: ACUTE LYMPHOCYTIC LEUKAEMIA
     Dosage: 400 MG, BID
     Route: 048
     Dates: start: 20070416, end: 20070514
  2. METHOTREXATE [Suspect]
     Indication: ACUTE LYMPHOCYTIC LEUKAEMIA
     Dosage: 15MG
     Route: 039
     Dates: start: 20070430, end: 20070430
  3. METHOTREXATE [Suspect]
     Dosage: 15MG
     Dates: start: 20070416
  4. CYTARABINE [Suspect]
     Indication: ACUTE LYMPHOCYTIC LEUKAEMIA
     Dosage: 40MG
     Route: 039
     Dates: start: 20070430, end: 20070430
  5. CYTARABINE [Suspect]
     Dosage: 40MG
     Dates: start: 20070416
  6. PREDNISOLONE [Suspect]
     Dosage: 40MG
     Route: 039
     Dates: start: 20070430
  7. DEXAMETHASONE 0.5MG TAB [Suspect]
     Indication: ACUTE LYMPHOCYTIC LEUKAEMIA
     Dosage: 40MG
     Dates: start: 20070416
  8. ZOFRAN [Suspect]
     Indication: ACUTE LYMPHOCYTIC LEUKAEMIA
     Dosage: 8MG
     Dates: start: 20070416
  9. VINCRISTINE [Suspect]
     Indication: ACUTE LYMPHOCYTIC LEUKAEMIA
     Dosage: 2MG
  10. CYCLOPHOSPHAMIDE [Suspect]
     Indication: ACUTE LYMPHOCYTIC LEUKAEMIA
     Dosage: 500MG
     Dates: start: 20070416
  11. NEULASTA [Suspect]
     Indication: ACUTE LYMPHOCYTIC LEUKAEMIA
     Dosage: 6MG
  12. DOXORUBICIN HCL [Suspect]
     Indication: ACUTE LYMPHOCYTIC LEUKAEMIA
     Dosage: 84MG

REACTIONS (3)
  - ASTHENIA [None]
  - GENERAL PHYSICAL HEALTH DETERIORATION [None]
  - VOMITING [None]
